FAERS Safety Report 20097592 (Version 4)
Quarter: 2022Q1

REPORT INFORMATION
  Report Type: Report from Study
  Country: CN (occurrence: None)
  Receive Date: 20211122
  Receipt Date: 20220215
  Transmission Date: 20220423
  Serious: Yes (Hospitalization)
  Sender: FDA-Public Use
  Company Number: CN-ROCHE-2957199

PATIENT
  Age: 37 Year
  Sex: Female
  Weight: 42 kg

DRUGS (35)
  1. ATEZOLIZUMAB [Suspect]
     Active Substance: ATEZOLIZUMAB
     Indication: HER2 positive breast cancer
     Dosage: DATE OF MOST RECENT DOSE OF BLINDED  ATEZOLIZUMAB PRIOR TO AE  ONSET: 15/OCT/2021						?DATE OF MOST
     Route: 041
     Dates: start: 20210903
  2. ADO-TRASTUZUMAB EMTANSINE [Suspect]
     Active Substance: ADO-TRASTUZUMAB EMTANSINE
     Indication: HER2 positive breast cancer
     Dosage: DATE OF MOST RECENT DOSE OF TASTUZUMAB EMTANSINE (162 MG/KG) PRIOR TO AE  ONSET: 15/OCT/2021?DATE OF
     Route: 042
     Dates: start: 20210903
  3. TOREMIFENE [Concomitant]
     Active Substance: TOREMIFENE
     Route: 048
     Dates: start: 20210814, end: 20211012
  4. AROMASIN [Concomitant]
     Active Substance: EXEMESTANE
     Route: 048
     Dates: start: 20211013
  5. CALCIUM CARBONATE\CHOLECALCIFEROL [Concomitant]
     Active Substance: CALCIUM CARBONATE\CHOLECALCIFEROL
     Dates: start: 20210812
  6. COMPOUND PSEUDOEPHEDRINE HYDROCHLORIDE [Concomitant]
     Indication: Rhinorrhoea
     Dates: start: 20211010, end: 20211012
  7. COMPOUND PSEUDOEPHEDRINE HYDROCHLORIDE [Concomitant]
     Indication: Productive cough
  8. COMPOUND PSEUDOEPHEDRINE HYDROCHLORIDE [Concomitant]
     Indication: Cough
  9. JIN HUA QING GAN GRANULES [Concomitant]
     Indication: Cough
     Dates: start: 20211010, end: 20211012
  10. JIN HUA QING GAN GRANULES [Concomitant]
     Indication: Rhinorrhoea
  11. JIN HUA QING GAN GRANULES [Concomitant]
     Indication: Productive cough
  12. JIAN GAN LING JIAO NANG [Concomitant]
     Indication: Alanine aminotransferase increased
     Dates: start: 20211106, end: 20211109
  13. JIAN GAN LING JIAO NANG [Concomitant]
     Indication: Aspartate aminotransferase increased
  14. TERBUTALINE SULFATE [Concomitant]
     Active Substance: TERBUTALINE SULFATE
     Indication: Productive cough
     Dates: start: 20211015, end: 20211015
  15. TERBUTALINE SULFATE [Concomitant]
     Active Substance: TERBUTALINE SULFATE
     Indication: Cough
  16. BUDESONIDE [Concomitant]
     Active Substance: BUDESONIDE
     Indication: Productive cough
     Dates: start: 20211015, end: 20211015
  17. BUDESONIDE [Concomitant]
     Active Substance: BUDESONIDE
     Indication: Cough
  18. PALONOSETRON HYDROCHLORIDE [Concomitant]
     Active Substance: PALONOSETRON HYDROCHLORIDE
     Dates: start: 20211105, end: 20211105
  19. MAGNESIUM ISOGLYCYRRHIZINATE [Concomitant]
     Active Substance: MAGNESIUM ISOGLYCYRRHIZINATE
     Indication: Aspartate aminotransferase increased
     Dates: start: 20211105, end: 20211105
  20. MAGNESIUM ISOGLYCYRRHIZINATE [Concomitant]
     Active Substance: MAGNESIUM ISOGLYCYRRHIZINATE
     Indication: Alanine aminotransferase increased
  21. GLUTATHIONE [Concomitant]
     Active Substance: GLUTATHIONE
     Indication: Alanine aminotransferase increased
     Dates: start: 20211016, end: 20211022
  22. GLUTATHIONE [Concomitant]
     Active Substance: GLUTATHIONE
     Indication: Aspartate aminotransferase increased
     Dates: start: 20211106, end: 20211111
  23. PHOSPHOLIPID [Concomitant]
     Active Substance: PHOSPHOLIPID
     Indication: Aspartate aminotransferase increased
     Dates: start: 20211016, end: 20211022
  24. PHOSPHOLIPID [Concomitant]
     Active Substance: PHOSPHOLIPID
     Indication: Alanine aminotransferase increased
     Dates: start: 20211110, end: 20211111
  25. PHOSPHOLIPID [Concomitant]
     Active Substance: PHOSPHOLIPID
     Dates: start: 20211011, end: 20211015
  26. CEFUROXIME AXETIL [Concomitant]
     Active Substance: CEFUROXIME AXETIL
     Indication: Pyrexia
     Dates: start: 20211111, end: 20211112
  27. CEFUROXIME AXETIL [Concomitant]
     Active Substance: CEFUROXIME AXETIL
     Dates: start: 20211113, end: 20211114
  28. CEFUROXIME AXETIL [Concomitant]
     Active Substance: CEFUROXIME AXETIL
     Dates: start: 20211115, end: 20211121
  29. POTASSIUM CHLORIDE [Concomitant]
     Active Substance: POTASSIUM CHLORIDE
     Indication: Hypokalaemia
     Dates: start: 20211112, end: 20211114
  30. COMPOUND DICLOFENAC SODIUM [Concomitant]
     Indication: Pyrexia
     Dates: start: 20211111, end: 20211111
  31. LACTULOSE [Concomitant]
     Active Substance: LACTULOSE
     Indication: Constipation
     Route: 048
     Dates: start: 20211111, end: 20211111
  32. PROMETHAZINE HYDROCHLORIDE [Concomitant]
     Active Substance: PROMETHAZINE HYDROCHLORIDE
     Dates: start: 20211111, end: 20211111
  33. CELECOXIB [Concomitant]
     Active Substance: CELECOXIB
     Indication: Pyrexia
     Dates: start: 20211112, end: 20211112
  34. RECOMBINANT HUMAN GRANULOCYTE COLONY STIMULATING FACTOR (UNK INGREDIEN [Concomitant]
     Indication: White blood cell count decreased
     Dates: start: 20211119, end: 20211121
  35. RECOMBINANT HUMAN GRANULOCYTE COLONY STIMULATING FACTOR (UNK INGREDIEN [Concomitant]
     Indication: Neutrophil count decreased

REACTIONS (1)
  - Platelet count decreased [Recovered/Resolved]

NARRATIVE: CASE EVENT DATE: 20211104
